FAERS Safety Report 7979665-3 (Version None)
Quarter: 2011Q4

REPORT INFORMATION
  Report Type: 
  Country: None (occurrence: None)
  Receive Date: 20111214
  Receipt Date: 20111213
  Transmission Date: 20120403
  Serious: Yes (Other)
  Sender: FDA-Public Use
  Company Number: ES-ROCHE-796392

PATIENT
  Sex: Female
  Weight: 51 kg

DRUGS (7)
  1. XELODA [Suspect]
     Indication: BREAST CANCER METASTATIC
     Dosage: DATE OF LAST DOSE PRIOR TO SAE 4-AUG-2011. PERMANENTLY DISCONTINUED.
     Route: 042
     Dates: start: 20110405, end: 20110831
  2. HERCEPTIN [Suspect]
     Indication: BREAST CANCER METASTATIC
     Dosage: DATE OF LAST DOSE PRIOR TO SAE: 21-JUL-2011. PERMANENTLY DISCONTINUED ON 31 AUGUST 2011.
     Route: 042
     Dates: start: 20110405, end: 20110831
  3. PERTUZUMAB [Suspect]
     Indication: BREAST CANCER METASTATIC
     Dosage: DATE OF LAST DOSE PRIOR TO SAE: 21-JUL-2011. PERMANENTLY DISCONTINUED ON 31 AUGUST 2011.
     Route: 042
     Dates: start: 20110404, end: 20110831
  4. HEPARIN [Concomitant]
  5. PANTOPRAZOLE [Concomitant]
  6. IBUPROFEN [Concomitant]
     Dosage: TDD: IF REQUIRED
  7. LORAZEPAM [Concomitant]
     Dosage: TDD: IF REQUIRED

REACTIONS (1)
  - LEFT VENTRICULAR DYSFUNCTION [None]
